FAERS Safety Report 5680454-3 (Version None)
Quarter: 2008Q1

REPORT INFORMATION
  Report Type: 
  Country: None (occurrence: None)
  Receive Date: 20080326
  Receipt Date: 20080325
  Transmission Date: 20080703
  Serious: Yes (Life-Threatening)
  Sender: FDA-Public Use
  Company Number: B0499989A

PATIENT
  Age: 23 Year
  Sex: Female

DRUGS (10)
  1. PAXIL [Suspect]
     Indication: PANIC DISORDER
     Dosage: 10MG PER DAY
     Route: 048
     Dates: start: 20071012, end: 20071025
  2. PAXIL [Suspect]
     Dosage: 20MG PER DAY
     Route: 048
     Dates: start: 20071026, end: 20071108
  3. PAXIL [Suspect]
     Dosage: 30MG PER DAY
     Route: 048
     Dates: start: 20071112, end: 20071206
  4. PAXIL [Suspect]
     Dosage: 10MG PER DAY
     Route: 048
     Dates: start: 20071207
  5. GASTER D [Suspect]
     Indication: GASTRIC DISORDER
     Dosage: 20MG PER DAY
     Route: 048
     Dates: start: 20071026
  6. SELBEX [Concomitant]
     Indication: GASTRIC DISORDER
     Dosage: 50MG THREE TIMES PER DAY
     Route: 048
     Dates: start: 20071012
  7. NAUZELIN [Concomitant]
     Indication: GASTRIC DISORDER
     Dosage: 10MG THREE TIMES PER DAY
     Route: 048
  8. TERNELIN [Concomitant]
     Indication: MUSCULOSKELETAL STIFFNESS
     Dosage: 1MG THREE TIMES PER DAY
     Route: 048
     Dates: start: 20071012
  9. DEPAS [Concomitant]
     Indication: PANIC DISORDER
     Route: 048
  10. LUVOX [Concomitant]
     Indication: PANIC DISORDER
     Dosage: 25MG TWICE PER DAY
     Route: 048
     Dates: start: 20080125

REACTIONS (4)
  - ALTERED STATE OF CONSCIOUSNESS [None]
  - DELUSION [None]
  - HALLUCINATION [None]
  - POSTPARTUM STATE [None]
